FAERS Safety Report 4688425-0 (Version None)
Quarter: 2005Q2

REPORT INFORMATION
  Report Type: 
  Country: None (occurrence: None)
  Receive Date: 20050609
  Receipt Date: 20050527
  Transmission Date: 20051028
  Serious: Yes (Hospitalization, Other)
  Sender: FDA-Public Use
  Company Number: 2005044854

PATIENT
  Age: 63 Year
  Sex: Female
  Weight: 64 kg

DRUGS (9)
  1. CELEBREX [Suspect]
     Indication: SPINAL DISORDER
     Dosage: 400 MG (200 MG, 2 IN 1 D), ORAL
     Route: 048
     Dates: start: 20030101, end: 20040501
  2. LEVOTHYROXINE SODIUM [Concomitant]
  3. AMITRIPTYLINE HCL [Concomitant]
  4. ALL OTHER THERAPEUTIC PRODUCTS (ALL OTHER THERAPEUTIC PRODUCTS) [Concomitant]
  5. ESOMEPRAZOLE (ESOMEPRAZOLE) [Concomitant]
  6. TIBOLONE (TIBOLONE) [Concomitant]
  7. MAGNESIUM (MAGNESIUM) [Concomitant]
  8. ALL OTHER THERAPEUTIC PRODUCTS (ALL OTHER THERAPEUTIC PRODUCTS) [Concomitant]
  9. CALCIUM (CALCIUM) [Concomitant]

REACTIONS (7)
  - ANGINA PECTORIS [None]
  - CARDIAC ARREST [None]
  - HYPERTENSION [None]
  - INTERVERTEBRAL DISC DEGENERATION [None]
  - MALAISE [None]
  - SELF-MEDICATION [None]
  - TACHYCARDIA [None]
